FAERS Safety Report 25920034 (Version 1)
Quarter: 2025Q4

REPORT INFORMATION
  Report Type: Spontaneous
  Country: US (occurrence: None)
  Receive Date: 20251014
  Receipt Date: 20251014
  Transmission Date: 20260118
  Serious: No
  Sender: FDA-CTU
  Company Number: None

PATIENT
  Age: 33 Month
  Sex: Female
  Weight: 13.05 kg

DRUGS (2)
  1. POLYMYXIN B SULFATE AND TRIMETHOPRIM [Suspect]
     Active Substance: POLYMYXIN B SULFATE\TRIMETHOPRIM SULFATE
     Indication: Conjunctivitis
     Dosage: 1 DROP(S) 4 TIMES A DAY OPHTHALMIC ?
     Route: 047
     Dates: start: 20251006, end: 20251011
  2. Albuterol inhaler + nebulizer. [Concomitant]

REACTIONS (2)
  - Petechiae [None]
  - Eye disorder [None]

NARRATIVE: CASE EVENT DATE: 20251012
